FAERS Safety Report 18898075 (Version 8)
Quarter: 2021Q3

REPORT INFORMATION
  Report Type: Spontaneous
  Country: US (occurrence: US)
  Receive Date: 20210216
  Receipt Date: 20210817
  Transmission Date: 20211014
  Serious: Yes (Other)
  Sender: FDA-Public Use
  Company Number: US-PFIZER INC-2021131701

PATIENT
  Age: 68 Year
  Sex: Female

DRUGS (2)
  1. GENOTROPIN MQ [Suspect]
     Active Substance: SOMATROPIN
     Dosage: 0.8 MG, DAILY
  2. GENOTROPIN MQ [Suspect]
     Active Substance: SOMATROPIN
     Dosage: 1 MG DAILY

REACTIONS (10)
  - Malaise [Unknown]
  - Muscular weakness [Unknown]
  - Loss of personal independence in daily activities [Unknown]
  - Urinary incontinence [Unknown]
  - Dysstasia [Unknown]
  - General physical health deterioration [Unknown]
  - Road traffic accident [Unknown]
  - Ankle fracture [Unknown]
  - Balance disorder [Unknown]
  - Feeling abnormal [Unknown]

NARRATIVE: CASE EVENT DATE: 20210603
